FAERS Safety Report 6241622-5 (Version None)
Quarter: 2009Q2

REPORT INFORMATION
  Report Type: 
  Country: None (occurrence: None)
  Receive Date: 20090623
  Receipt Date: 20050509
  Transmission Date: 20091009
  Serious: Yes (Life-Threatening, Hospitalization)
  Sender: FDA-Public Use
  Company Number: CZ-ROCHE-418194

PATIENT
  Sex: Male
  Weight: 77 kg

DRUGS (36)
  1. DACLIZUMAB [Suspect]
     Route: 042
     Dates: start: 20040510, end: 20040510
  2. DACLIZUMAB [Suspect]
     Route: 042
     Dates: start: 20040524, end: 20040621
  3. MYCOPHENOLATE MOFETIL [Suspect]
     Route: 048
     Dates: start: 20040510, end: 20040628
  4. TACROLIMUS [Suspect]
     Route: 048
     Dates: start: 20040509
  5. TACROLIMUS [Suspect]
     Route: 048
     Dates: start: 20040830
  6. TACROLIMUS [Suspect]
     Route: 048
     Dates: start: 20041110
  7. PREDNISONE [Suspect]
     Dosage: DRUG: PREDNISON
     Route: 048
     Dates: start: 20040512, end: 20040527
  8. PREDNISONE [Suspect]
     Route: 048
     Dates: start: 20040606, end: 20040626
  9. PREDNISONE [Suspect]
     Route: 048
     Dates: start: 20040720
  10. PREDNISONE [Suspect]
     Route: 048
     Dates: start: 20041004
  11. METHYLPREDNISOLONE [Suspect]
     Dosage: DRUG: METYLPREDNISOLON
     Route: 042
     Dates: start: 20040509, end: 20040509
  12. METHYLPREDNISOLONE [Suspect]
     Route: 042
     Dates: start: 20040510, end: 20040510
  13. METHYLPREDNISOLONE [Suspect]
     Route: 042
     Dates: start: 20040511, end: 20040512
  14. METHYLPREDNISOLONE [Suspect]
     Route: 042
     Dates: start: 20040527
  15. METHYLPREDNISOLONE [Suspect]
     Route: 042
     Dates: start: 20040530
  16. METHYLPREDNISOLONE [Suspect]
     Route: 042
     Dates: start: 20040602, end: 20040606
  17. METHYLPREDNISOLONE [Suspect]
     Dosage: DRUG: METYLPREDNISOLON
     Route: 042
     Dates: start: 20040627, end: 20040718
  18. RANISAN [Concomitant]
     Dates: start: 20040510, end: 20040626
  19. VENTER [Concomitant]
     Dates: start: 20040701
  20. ANOPYRIN [Concomitant]
     Dates: start: 20040513, end: 20040626
  21. COTRIM [Concomitant]
     Route: 048
     Dates: start: 20040516, end: 20050209
  22. HELICID [Concomitant]
     Dates: start: 20040626
  23. MYCOMAX [Concomitant]
     Dates: start: 20040611
  24. OMNIC [Concomitant]
     Dates: start: 20040610
  25. TACEF [Concomitant]
     Dates: start: 20040626, end: 20040629
  26. AMOXICILLIN AND CLAVULANATE POTASSIUM [Concomitant]
     Dosage: DRUG: AMOXYCILIN + CLAVULONATE
     Route: 048
     Dates: start: 20040606
  27. AMOXICILLIN AND CLAVULANATE POTASSIUM [Concomitant]
     Route: 042
     Dates: start: 20040630, end: 20040716
  28. CEFEPIME [Concomitant]
     Dosage: DRUG: CEFEPIM
     Route: 042
     Dates: start: 20040716, end: 20040723
  29. CEFOTAXIM [Concomitant]
     Route: 042
     Dates: start: 20040626, end: 20040629
  30. DOXAZOSIN MESYLATE [Concomitant]
     Route: 048
     Dates: start: 20040509
  31. FLUCONAZOLE [Concomitant]
     Route: 048
     Dates: start: 20040606
  32. FLUCONAZOLE [Concomitant]
     Route: 048
     Dates: start: 20040626, end: 20040627
  33. ITRACONAZOL [Concomitant]
     Route: 048
     Dates: start: 20040717, end: 20040720
  34. LOSARTAN POTASSIUM [Concomitant]
     Dosage: DRUG: LOSARTANUM
     Route: 048
     Dates: start: 20040509
  35. METOPROLOL SUCCINATE [Concomitant]
     Route: 048
     Dates: start: 20040830
  36. VANCOMYCIN [Concomitant]
     Route: 042
     Dates: start: 20040629, end: 20040630

REACTIONS (2)
  - GASTROINTESTINAL HAEMORRHAGE [None]
  - SEPSIS [None]
